FAERS Safety Report 23558628 (Version 2)
Quarter: 2024Q1

REPORT INFORMATION
  Report Type: Spontaneous
  Country: JP (occurrence: None)
  Receive Date: 20240223
  Receipt Date: 20240228
  Transmission Date: 20240410
  Serious: Yes (Other)
  Sender: FDA-Public Use
  Company Number: 2024A042100

PATIENT
  Age: 54 Year
  Sex: Male

DRUGS (5)
  1. EVUSHELD [Suspect]
     Active Substance: CILGAVIMAB\TIXAGEVIMAB
     Indication: COVID-19 treatment
     Dosage: DOSE UNKNOWN
     Route: 030
     Dates: start: 2022, end: 2022
  2. CORONAVIRUS(SARS-COV-2) RNA VACCINE [Concomitant]
     Dosage: DOSE UNKNOWN
     Route: 065
  3. CORONAVIRUS(SARS-COV-2) RNA VACCINE [Concomitant]
     Dosage: DOSE UNKNOWN
     Route: 065
  4. PREDNISOLONE [Concomitant]
     Active Substance: PREDNISOLONE
     Dosage: DOSE UNKNOWN
     Route: 065
  5. REMDESIVIR [Concomitant]
     Active Substance: REMDESIVIR
     Indication: COVID-19 treatment
     Dosage: DOSE UNKNOWN

REACTIONS (1)
  - Pneumonia [Unknown]

NARRATIVE: CASE EVENT DATE: 20220101
